FAERS Safety Report 9492056 (Version 1)
Quarter: 2013Q3

REPORT INFORMATION
  Report Type: Spontaneous
  Country: US (occurrence: US)
  Receive Date: 20130830
  Receipt Date: 20130830
  Transmission Date: 20140515
  Serious: No
  Sender: FDA-Public Use
  Company Number: US-TARO-2013P1003215

PATIENT
  Age: 83 Year
  Sex: Female
  Weight: 70.31 kg

DRUGS (10)
  1. METRONIDAZOLE [Suspect]
     Indication: ROSACEA
     Route: 061
     Dates: start: 20130119, end: 20130226
  2. DILTIAZEM [Concomitant]
     Dates: start: 2005
  3. ESCITALOPRAM [Concomitant]
     Dates: start: 2011
  4. CALCIUM [Concomitant]
  5. VITAMIN D3 [Concomitant]
  6. B12 [Concomitant]
  7. MAGNESIUM [Concomitant]
  8. FISH OIL [Concomitant]
  9. MULTIVITAMINS [Concomitant]
  10. FORTICAL [Concomitant]
     Route: 045
     Dates: start: 2005

REACTIONS (4)
  - Pruritus [Recovered/Resolved]
  - Erythema [Unknown]
  - Discomfort [Unknown]
  - Skin irritation [Unknown]
